FAERS Safety Report 26139180 (Version 1)
Quarter: 2025Q4

REPORT INFORMATION
  Report Type: Spontaneous
  Country: US (occurrence: US)
  Receive Date: 20251210
  Receipt Date: 20251210
  Transmission Date: 20260118
  Serious: Yes (Death, Hospitalization)
  Sender: AMGEN
  Company Number: US-AMGEN-USASP2025241180

PATIENT
  Age: 80 Year
  Sex: Female

DRUGS (5)
  1. PREDNISONE [Suspect]
     Active Substance: PREDNISONE
     Indication: Mesenteric panniculitis
     Dosage: UNK
     Route: 065
  2. IRON SUCROSE [Concomitant]
     Active Substance: IRON SUCROSE
     Route: 040
  3. ERYTHROPOIETIN [Concomitant]
     Active Substance: ERYTHROPOIETIN
  4. ERTAPENEM [Concomitant]
     Active Substance: ERTAPENEM
     Indication: Escherichia infection
  5. TAMOXIFEN [Concomitant]
     Active Substance: TAMOXIFEN
     Indication: Mesenteric panniculitis

REACTIONS (4)
  - Death [Fatal]
  - Large intestine perforation [Unknown]
  - Gastrointestinal wall thickening [Unknown]
  - Off label use [Unknown]
